FAERS Safety Report 6582714-0 (Version None)
Quarter: 2010Q1

REPORT INFORMATION
  Report Type: 
  Country: None (occurrence: None)
  Receive Date: 20100216
  Receipt Date: 20100206
  Transmission Date: 20100710
  Serious: Yes (Hospitalization, Other)
  Sender: FDA-Public Use
  Company Number: GB-ELI_LILLY_AND_COMPANY-GB201002002562

PATIENT
  Age: 45 Year
  Sex: Female

DRUGS (1)
  1. XIGRIS [Suspect]
     Indication: SEPSIS
     Dosage: 24 MG/KG/HR, DAILY (1/D)
     Route: 042
     Dates: start: 20100204

REACTIONS (1)
  - PLATELET COUNT DECREASED [None]
